FAERS Safety Report 8263375-1 (Version None)
Quarter: 2012Q2

REPORT INFORMATION
  Report Type: 
  Country: None (occurrence: None)
  Receive Date: 20120405
  Receipt Date: 20120403
  Transmission Date: 20120825
  Serious: Yes (Death, Hospitalization, Other)
  Sender: FDA-Public Use
  Company Number: BR-ABBOTT-12P-020-0920227-00

PATIENT
  Sex: Male
  Weight: 73 kg

DRUGS (4)
  1. HUMIRA [Suspect]
     Indication: ANKYLOSING SPONDYLITIS
     Dates: start: 20090601
  2. ENALAPRIL [Concomitant]
     Indication: PRODUCT USED FOR UNKNOWN INDICATION
  3. UNSPECIFIED DRUG [Concomitant]
     Indication: DIABETES MELLITUS
  4. HUMIRA [Suspect]
     Indication: RHEUMATOID ARTHRITIS
     Dates: start: 20090301, end: 20091111

REACTIONS (11)
  - MULTI-ORGAN FAILURE [None]
  - WEIGHT DECREASED [None]
  - DEPRESSION [None]
  - PYREXIA [None]
  - NOSOCOMIAL INFECTION [None]
  - DIABETES MELLITUS [None]
  - ASTHENIA [None]
  - RENAL DISORDER [None]
  - FATIGUE [None]
  - HYPERTENSION [None]
  - DECREASED APPETITE [None]
